FAERS Safety Report 18527725 (Version 5)
Quarter: 2021Q1

REPORT INFORMATION
  Report Type: Spontaneous
  Country: US (occurrence: US)
  Receive Date: 20201120
  Receipt Date: 20210127
  Transmission Date: 20210419
  Serious: Yes (Other)
  Sender: FDA-Public Use
  Company Number: US-GLAXOSMITHKLINE-US2020AMR228216

PATIENT
  Sex: Female

DRUGS (4)
  1. ZEJULA [Suspect]
     Active Substance: NIRAPARIB
     Dosage: 200 MG, QD
     Route: 048
  2. ZEJULA [Suspect]
     Active Substance: NIRAPARIB
     Dosage: 200 MG, QD
     Route: 065
  3. ZEJULA [Suspect]
     Active Substance: NIRAPARIB
     Indication: OVARIAN CANCER
     Dosage: 200 MG, QD
     Route: 065
     Dates: start: 20201106
  4. ZEJULA [Suspect]
     Active Substance: NIRAPARIB
     Dosage: 200 MG, QD
     Dates: end: 20210114

REACTIONS (8)
  - Sleep disorder [Recovered/Resolved]
  - Carbohydrate antigen 125 increased [Unknown]
  - Malignant neoplasm progression [Unknown]
  - Blood alkaline phosphatase decreased [Unknown]
  - White blood cell count decreased [Recovering/Resolving]
  - Mean cell volume increased [Unknown]
  - Red blood cell count decreased [Not Recovered/Not Resolved]
  - Heart rate increased [Recovered/Resolved]
